FAERS Safety Report 23512686 (Version 2)
Quarter: 2024Q1

REPORT INFORMATION
  Report Type: Spontaneous
  Country: US (occurrence: US)
  Receive Date: 20240212
  Receipt Date: 20240215
  Transmission Date: 20240410
  Serious: Yes (Hospitalization, Other)
  Sender: FDA-Public Use
  Company Number: US-BRISTOL-MYERS SQUIBB COMPANY-2024-021124

PATIENT
  Age: 35 Year
  Sex: Female

DRUGS (3)
  1. PACLITAXEL [Suspect]
     Active Substance: PACLITAXEL
     Indication: Breast cancer metastatic
     Dosage: CYCLE 1 DAY 1 OF WEEKLY NAB-PACLITAXEL AND RECEIVED A TOTAL OF THREE DOSES DATED 25 FEB 2023, 04 MAR
     Dates: start: 20230225
  2. PACLITAXEL [Suspect]
     Active Substance: PACLITAXEL
     Dosage: CYCLE 1 DAY 1 OF WEEKLY NAB-PACLITAXEL AND RECEIVED A TOTAL OF THREE DOSES DATED 25 FEB 2023, 04 MAR
     Dates: start: 20230304
  3. PACLITAXEL [Suspect]
     Active Substance: PACLITAXEL
     Dosage: CYCLE 1 DAY 1 OF WEEKLY NAB-PACLITAXEL AND RECEIVED A TOTAL OF THREE DOSES DATED 25 FEB 2023, 04 MAR
     Dates: start: 20230311

REACTIONS (1)
  - Pancytopenia [Unknown]

NARRATIVE: CASE EVENT DATE: 20230101
